FAERS Safety Report 6250377-X (Version None)
Quarter: 2009Q2

REPORT INFORMATION
  Report Type: 
  Country: None (occurrence: None)
  Receive Date: 20090630
  Receipt Date: 20090617
  Transmission Date: 20091009
  Serious: Yes (Hospitalization)
  Sender: FDA-Public Use
  Company Number: DE-TEVA-199191ISR

PATIENT
  Sex: Female

DRUGS (4)
  1. DOXORUBICIN HCL [Suspect]
     Indication: HODGKIN'S DISEASE
     Dates: start: 20090320, end: 20090506
  2. BLEOMYCIN SULFATE [Suspect]
     Indication: HODGKIN'S DISEASE
     Dates: start: 20090320, end: 20090506
  3. DACARBAZINE [Suspect]
     Indication: HODGKIN'S DISEASE
     Dates: start: 20090320, end: 20090506
  4. VINBLASTINE SULFATE [Suspect]
     Indication: HODGKIN'S DISEASE
     Dates: start: 20090320, end: 20090506

REACTIONS (1)
  - LUNG INFILTRATION [None]
